FAERS Safety Report 6983173-6 (Version None)
Quarter: 2010Q3

REPORT INFORMATION
  Report Type: 
  Country: None (occurrence: None)
  Receive Date: 20100914
  Receipt Date: 20100705
  Transmission Date: 20110219
  Serious: No
  Sender: FDA-Public Use
  Company Number: US-PFIZER INC-2010071087

PATIENT
  Sex: Male

DRUGS (6)
  1. LYRICA [Suspect]
     Dosage: UNK MG, UNK
  2. LYRICA [Suspect]
     Dosage: 50 MG, 2 TO 3 TIMES DAILY
  3. TYLENOL [Suspect]
     Dosage: UNK
  4. OXYCODONE [Suspect]
     Dosage: UNK
  5. VOLTAREN [Suspect]
     Dosage: UNK
  6. ALEVE (CAPLET) [Concomitant]

REACTIONS (2)
  - DRUG EFFECT DECREASED [None]
  - DRUG INEFFECTIVE [None]
